FAERS Safety Report 9246850 (Version 1)
Quarter: 2013Q2

REPORT INFORMATION
  Report Type: Spontaneous
  Country: US (occurrence: US)
  Receive Date: 20130422
  Receipt Date: 20130422
  Transmission Date: 20140414
  Serious: Yes (Hospitalization, Other)
  Sender: FDA-Public Use
  Company Number: US-ABBOTT-13P-163-1076231-00

PATIENT
  Age: 74 Year
  Sex: Female
  Weight: 90.8 kg

DRUGS (5)
  1. HUMIRA [Suspect]
     Indication: RHEUMATOID ARTHRITIS
     Dates: start: 200810, end: 201303
  2. HUMIRA [Suspect]
     Dates: start: 201303
  3. GLIPIZIDE [Concomitant]
     Indication: DIABETES MELLITUS
  4. METOPROLOL [Concomitant]
     Indication: HYPERTENSION
  5. ALLOPURINOL [Concomitant]
     Indication: GOUT

REACTIONS (4)
  - Diabetes mellitus [Not Recovered/Not Resolved]
  - Herpes zoster [Recovered/Resolved]
  - Hepatic enzyme abnormal [Not Recovered/Not Resolved]
  - Nasopharyngitis [Recovered/Resolved]
